FAERS Safety Report 4735084-4 (Version None)
Quarter: 2005Q3

REPORT INFORMATION
  Report Type: 
  Country: None (occurrence: None)
  Receive Date: 20050804
  Receipt Date: 20050426
  Transmission Date: 20060218
  Serious: Yes (Hospitalization, Other)
  Sender: FDA-Public Use
  Company Number: US-MERCK-0504USA04789

PATIENT
  Age: 45 Year
  Sex: Female
  Weight: 114 kg

DRUGS (1)
  1. VIOXX [Suspect]
     Indication: ARTHRITIS
     Route: 048
     Dates: start: 20021001, end: 20030521

REACTIONS (11)
  - BLOOD CHOLESTEROL INCREASED [None]
  - BLOOD PRESSURE INADEQUATELY CONTROLLED [None]
  - BUNION [None]
  - DEEP VEIN THROMBOSIS [None]
  - DYSPEPSIA [None]
  - DYSPNOEA [None]
  - GALLBLADDER DISORDER [None]
  - LIVER DISORDER [None]
  - MUSCLE SPASMS [None]
  - OVERDOSE [None]
  - RENAL FAILURE [None]
